FAERS Safety Report 15255213 (Version 1)
Quarter: 2018Q3

REPORT INFORMATION
  Report Type: Spontaneous
  Country: US (occurrence: US)
  Receive Date: 20180808
  Receipt Date: 20180808
  Transmission Date: 20181010
  Serious: Yes (Other)
  Sender: FDA-Public Use
  Company Number: US-PFIZER INC-2018315357

PATIENT
  Age: 39 Year
  Sex: Male

DRUGS (2)
  1. TEMAZEPAM. [Suspect]
     Active Substance: TEMAZEPAM
     Indication: NEUROSYPHILIS
     Dosage: 30 MG, DAILY
  2. LORAZEPAM. [Suspect]
     Active Substance: LORAZEPAM
     Indication: NEUROSYPHILIS
     Dosage: UNK, AS NEEDED (1?3 MG, PRN)

REACTIONS (1)
  - Withdrawal catatonia [Recovered/Resolved]
